FAERS Safety Report 4484305-4 (Version None)
Quarter: 2004Q4

REPORT INFORMATION
  Report Type: 
  Country: None (occurrence: None)
  Receive Date: 20041025
  Receipt Date: 20040729
  Transmission Date: 20050328
  Serious: Yes (Death)
  Sender: FDA-Public Use
  Company Number: US-BRISTOL-MYERS SQUIBB COMPANY-12655734

PATIENT
  Sex: Male
  Weight: 134 kg

DRUGS (1)
  1. ERBITUX [Suspect]
     Indication: COLORECTAL CANCER METASTATIC
     Dosage: LOADING DOSE
     Route: 042
     Dates: start: 20040719, end: 20040719

REACTIONS (1)
  - ANAPHYLACTIC REACTION [None]
